FAERS Safety Report 20964723 (Version 8)
Quarter: 2022Q4

REPORT INFORMATION
  Report Type: Spontaneous
  Country: US (occurrence: US)
  Receive Date: 20220615
  Receipt Date: 20221114
  Transmission Date: 20230113
  Serious: Yes (Hospitalization, Other)
  Sender: FDA-Public Use
  Company Number: US-PFIZER INC-202200839962

PATIENT
  Age: 66 Year
  Sex: Male
  Weight: 99.79 kg

DRUGS (2)
  1. DEPO-MEDROL [Suspect]
     Active Substance: METHYLPREDNISOLONE ACETATE
     Indication: Arthritis
     Dosage: UNK (INJECTED INTO KNEE)
     Route: 014
     Dates: start: 20220412
  2. GABAPENTIN [Concomitant]
     Active Substance: GABAPENTIN
     Indication: Back pain
     Dosage: 600 MG, 3X/DAY
     Route: 048

REACTIONS (24)
  - Product administered at inappropriate site [Not Recovered/Not Resolved]
  - Injection site haemorrhage [Recovered/Resolved]
  - Peripheral swelling [Not Recovered/Not Resolved]
  - Electric shock sensation [Not Recovered/Not Resolved]
  - Insomnia [Not Recovered/Not Resolved]
  - Pain in extremity [Not Recovered/Not Resolved]
  - Increased appetite [Recovered/Resolved]
  - Arthralgia [Not Recovered/Not Resolved]
  - Musculoskeletal discomfort [Not Recovered/Not Resolved]
  - Head discomfort [Not Recovered/Not Resolved]
  - Loss of consciousness [Not Recovered/Not Resolved]
  - Arthritis [Not Recovered/Not Resolved]
  - Arthritis bacterial [Unknown]
  - Syncope [Not Recovered/Not Resolved]
  - Drug ineffective [Not Recovered/Not Resolved]
  - Joint swelling [Not Recovered/Not Resolved]
  - Gait inability [Not Recovered/Not Resolved]
  - Arthropathy [Not Recovered/Not Resolved]
  - Joint swelling [Not Recovered/Not Resolved]
  - Peripheral swelling [Not Recovered/Not Resolved]
  - Pain [Not Recovered/Not Resolved]
  - Nodule [Not Recovered/Not Resolved]
  - Pyrexia [Recovered/Resolved]
  - Malaise [Unknown]

NARRATIVE: CASE EVENT DATE: 20220101
